FAERS Safety Report 7117807-2 (Version None)
Quarter: 2010Q4

REPORT INFORMATION
  Report Type: 
  Country: None (occurrence: None)
  Receive Date: 20101123
  Receipt Date: 20090108
  Transmission Date: 20110411
  Serious: No
  Sender: FDA-Public Use
  Company Number: 2009BI001068

PATIENT
  Sex: Female

DRUGS (3)
  1. TYSABRI [Suspect]
     Indication: MULTIPLE SCLEROSIS
     Route: 042
     Dates: start: 20080723
  2. AVONEX [Concomitant]
     Indication: MULTIPLE SCLEROSIS
     Route: 030
  3. COPAXONE [Concomitant]
     Indication: MULTIPLE SCLEROSIS
     Dates: start: 20060201

REACTIONS (8)
  - BLOOD GLUCOSE FLUCTUATION [None]
  - DYSKINESIA [None]
  - FATIGUE [None]
  - INFLUENZA [None]
  - INFLUENZA LIKE ILLNESS [None]
  - RASH [None]
  - RESTLESSNESS [None]
  - VEIN DISORDER [None]
